FAERS Safety Report 7981985 (Version 4)
Quarter: 2013Q2

REPORT INFORMATION
  Report Type: Report from Study
  Country: US (occurrence: US)
  Receive Date: 20110608
  Receipt Date: 20130408
  Transmission Date: 20140414
  Serious: Yes (Hospitalization, Other)
  Sender: FDA-Public Use
  Company Number: US-RB-027181-11

PATIENT
  Age: 47 Year
  Sex: Male

DRUGS (4)
  1. SUBOXONE TABLET [Suspect]
     Indication: DRUG DEPENDENCE
     Route: 060
     Dates: start: 201105, end: 2012
  2. XANAX [Suspect]
     Indication: DRUG DEPENDENCE
     Dosage: 4 TABLETS
     Route: 048
     Dates: start: 201105, end: 201105
  3. SEROQUEL [Concomitant]
     Indication: BIPOLAR DISORDER
     Dosage: DOSING DETAILS UNKNOWN
     Route: 065
  4. XANAX [Concomitant]
     Indication: INSOMNIA
     Dosage: ONCE DAILY
     Route: 065

REACTIONS (11)
  - Somnolence [Recovered/Resolved]
  - Euphoric mood [Recovered/Resolved]
  - Insomnia [Recovered/Resolved]
  - Decreased appetite [Recovered/Resolved]
  - Cardiac flutter [Recovered/Resolved]
  - Drug abuse [Recovered/Resolved]
  - Convulsion [Recovered/Resolved]
  - Eye movement disorder [Recovered/Resolved]
  - Tongue biting [Recovered/Resolved]
  - Hallucination [Recovered/Resolved]
  - Mouth haemorrhage [Recovered/Resolved]
